FAERS Safety Report 18957247 (Version 1)
Quarter: 2021Q1

REPORT INFORMATION
  Report Type: Spontaneous
  Country: US (occurrence: US)
  Receive Date: 20210301
  Receipt Date: 20210301
  Transmission Date: 20210420
  Serious: No
  Sender: FDA-Public Use
  Company Number: None

PATIENT
  Age: 27 Year
  Sex: Male
  Weight: 112.5 kg

DRUGS (2)
  1. FINASTERIDE. [Suspect]
     Active Substance: FINASTERIDE
     Indication: ALOPECIA
     Dates: start: 20131015, end: 20140401
  2. VITAMIN D [Concomitant]
     Active Substance: VITAMIN D NOS

REACTIONS (9)
  - Semen viscosity abnormal [None]
  - Hypotrichosis [None]
  - Libido decreased [None]
  - Muscle spasms [None]
  - Alopecia [None]
  - Libido increased [None]
  - Vitamin D deficiency [None]
  - Depression [None]
  - Orgasm abnormal [None]

NARRATIVE: CASE EVENT DATE: 20140105
